FAERS Safety Report 10373199 (Version 1)
Quarter: 2014Q3

REPORT INFORMATION
  Report Type: Spontaneous
  Country: US (occurrence: US)
  Receive Date: 20140808
  Receipt Date: 20140808
  Transmission Date: 20150326
  Serious: No
  Sender: FDA-Public Use
  Company Number: US-BRISTOL-MYERS SQUIBB COMPANY-20170106

PATIENT
  Age: 35 Year
  Sex: Female
  Weight: 113.38 kg

DRUGS (8)
  1. MULTIVITAMIN [Concomitant]
     Active Substance: VITAMINS
  2. CALCIUM [Concomitant]
     Active Substance: CALCIUM
     Dosage: 1DF: 1200 CHW
  3. TYLENOL [Concomitant]
     Active Substance: ACETAMINOPHEN
     Dosage: TAB
  4. TRAZODONE HCL TABS 50 MG [Concomitant]
     Dosage: TAB
  5. OXYBUTYNIN [Concomitant]
     Active Substance: OXYBUTYNIN
     Dosage: TAB
  6. SPRYCEL [Suspect]
     Active Substance: DASATINIB
     Route: 048
  7. LEXAPRO [Concomitant]
     Active Substance: ESCITALOPRAM OXALATE
     Dosage: TAB
  8. IMODIUM [Concomitant]
     Active Substance: LOPERAMIDE HYDROCHLORIDE

REACTIONS (3)
  - Headache [Unknown]
  - Diarrhoea [Unknown]
  - Nausea [Unknown]
